FAERS Safety Report 17365151 (Version 1)
Quarter: 2020Q1

REPORT INFORMATION
  Report Type: Spontaneous
  Country: ES (occurrence: ES)
  Receive Date: 20200204
  Receipt Date: 20200204
  Transmission Date: 20200409
  Serious: Yes (Hospitalization, Other)
  Sender: FDA-Public Use
  Company Number: ES-AUROBINDO-AUR-APL-2020-005147

PATIENT
  Age: 68 Year
  Sex: Male

DRUGS (4)
  1. SILODYX [Concomitant]
     Active Substance: SILODOSIN
     Indication: BENIGN PROSTATIC HYPERPLASIA
     Dosage: 8 MILLIGRAM, ONCE A DAY
     Route: 048
     Dates: start: 20180725
  2. BISOPROLOL [Suspect]
     Active Substance: BISOPROLOL
     Indication: MYOCARDIAL ISCHAEMIA
     Dosage: 2.5 MILLIGRAM, ONCE A DAY
     Route: 048
     Dates: start: 20100601, end: 20190415
  3. QUETIAPINE. [Concomitant]
     Active Substance: QUETIAPINE
     Indication: HUNTINGTON^S DISEASE
     Dosage: 100 MILLIGRAM, 3 TIMES A DAY
     Route: 048
     Dates: start: 20140722
  4. CIPRALEX [Concomitant]
     Active Substance: ESCITALOPRAM OXALATE
     Indication: DEPRESSION
     Dosage: 25 MILLIGRAM, ONCE A DAY
     Route: 048
     Dates: start: 20100601

REACTIONS (1)
  - Bradycardia [Recovered/Resolved]

NARRATIVE: CASE EVENT DATE: 20190413
